FAERS Safety Report 14118172 (Version 1)
Quarter: 2017Q4

REPORT INFORMATION
  Report Type: Spontaneous
  Country: US (occurrence: US)
  Receive Date: 20171024
  Receipt Date: 20171024
  Transmission Date: 20180321
  Serious: Yes (Other)
  Sender: FDA-Public Use
  Company Number: US-AMGEN-USASP2017158112

PATIENT
  Age: 83 Year
  Sex: Female

DRUGS (2)
  1. ENBREL [Suspect]
     Active Substance: ETANERCEPT
     Dosage: 25 MG, 3 TIMES/WK
     Route: 058
     Dates: start: 2017
  2. ENBREL [Suspect]
     Active Substance: ETANERCEPT
     Indication: RHEUMATOID ARTHRITIS
     Dosage: 25 MG, 3 TIMES/WK
     Route: 058
     Dates: end: 2017

REACTIONS (4)
  - Off label use [Unknown]
  - Joint range of motion decreased [Unknown]
  - Arthralgia [Unknown]
  - Foot operation [Recovered/Resolved]

NARRATIVE: CASE EVENT DATE: 2017
